FAERS Safety Report 9679008 (Version 1)
Quarter: 2013Q4

REPORT INFORMATION
  Report Type: Spontaneous
  Country: MY (occurrence: MY)
  Receive Date: 20131108
  Receipt Date: 20131108
  Transmission Date: 20140711
  Serious: Yes (Death)
  Sender: FDA-Public Use
  Company Number: MY-B.I. PHARMACEUTICALS,INC./RIDGEFIELD-2013-BI-36746MD

PATIENT
  Sex: 0

DRUGS (1)
  1. SPIRIVA [Suspect]

REACTIONS (1)
  - Death [Fatal]
